FAERS Safety Report 25085364 (Version 1)
Quarter: 2025Q1

REPORT INFORMATION
  Report Type: Spontaneous
  Country: US (occurrence: US)
  Receive Date: 20250317
  Receipt Date: 20250317
  Transmission Date: 20250409
  Serious: No
  Sender: Tilde Sciences
  Company Number: US-TILDE SCIENCES LLC-2025TIL00001

PATIENT
  Sex: Female

DRUGS (5)
  1. DARAPRIM [Suspect]
     Active Substance: PYRIMETHAMINE
     Indication: Eye infection toxoplasmal
     Dosage: 25 MG, 1X/DAY
     Route: 048
     Dates: start: 202412
  2. LEUCOVORIN [Concomitant]
     Active Substance: LEUCOVORIN\LEUCOVORIN CALCIUM
  3. CLINDAMYCIN [Concomitant]
     Active Substance: CLINDAMYCIN
  4. PROGUANIL [Concomitant]
     Active Substance: PROGUANIL
  5. ZANTAC [Concomitant]
     Active Substance: RANITIDINE HYDROCHLORIDE

REACTIONS (2)
  - Hepatic enzyme increased [Not Recovered/Not Resolved]
  - Off label use [Recovered/Resolved]

NARRATIVE: CASE EVENT DATE: 20241201
